FAERS Safety Report 14509150 (Version 1)
Quarter: 2018Q1

REPORT INFORMATION
  Report Type: Report from Study
  Country: AU (occurrence: AU)
  Receive Date: 20180209
  Receipt Date: 20180209
  Transmission Date: 20180509
  Serious: Yes (Hospitalization, Other)
  Sender: FDA-Public Use
  Company Number: AU-BRISTOL-MYERS SQUIBB COMPANY-BMS-2018-010488

PATIENT
  Age: 75 Year
  Sex: Female

DRUGS (2)
  1. IPILIMUMAB [Suspect]
     Active Substance: IPILIMUMAB
     Indication: PRODUCT USED FOR UNKNOWN INDICATION
     Dosage: 177 MG, Q3WK
     Route: 042
     Dates: start: 20171031, end: 20171121
  2. NIVOLUMAB [Suspect]
     Active Substance: NIVOLUMAB
     Indication: PRODUCT USED FOR UNKNOWN INDICATION
     Dosage: 59 MG, Q3WK
     Route: 042
     Dates: start: 20171031, end: 20171121

REACTIONS (1)
  - Wound infection [Recovering/Resolving]

NARRATIVE: CASE EVENT DATE: 20180201
